FAERS Safety Report 5081356-6 (Version None)
Quarter: 2006Q3

REPORT INFORMATION
  Report Type: 
  Country: None (occurrence: None)
  Receive Date: 20060720
  Receipt Date: 20051022
  Transmission Date: 20061208
  Serious: Yes (Other)
  Sender: FDA-Public Use
  Company Number: 2005141398

PATIENT
  Sex: Male
  Weight: 68.0396 kg

DRUGS (10)
  1. CELEBREX [Suspect]
     Indication: NEUROPATHY
  2. NEURONTIN [Suspect]
     Indication: NEUROPATHY
     Dosage: 300 MG (300 MG,1 IN 1 D)
  3. LYRICA [Suspect]
     Indication: NEUROPATHY
     Dosage: 150 MG (50 MG,3 IN 1 D)
     Dates: start: 20051001
  4. LYRICA [Suspect]
     Indication: POST HERPETIC NEURALGIA
     Dosage: 150 MG (50 MG,3 IN 1 D)
     Dates: start: 20051001
  5. ATENOLOL [Suspect]
     Indication: ILL-DEFINED DISORDER
  6. COZAAR [Suspect]
     Indication: ILL-DEFINED DISORDER
  7. ELAVIL [Suspect]
     Indication: NEUROPATHY
  8. DIGOXIN [Concomitant]
  9. ASPIRIN [Concomitant]
  10. LORAZEPAM [Concomitant]

REACTIONS (13)
  - ABDOMINAL DISTENSION [None]
  - BODY HEIGHT DECREASED [None]
  - DISORIENTATION [None]
  - DIZZINESS [None]
  - DRUG INEFFECTIVE [None]
  - DRUG INTOLERANCE [None]
  - DRY MOUTH [None]
  - DYSPNOEA [None]
  - HERPES ZOSTER [None]
  - POST HERPETIC NEURALGIA [None]
  - SWELLING [None]
  - VISION BLURRED [None]
  - WEIGHT INCREASED [None]
